FAERS Safety Report 7241575-7 (Version None)
Quarter: 2011Q1

REPORT INFORMATION
  Report Type: 
  Country: None (occurrence: None)
  Receive Date: 20110124
  Receipt Date: 20110111
  Transmission Date: 20110831
  Serious: Yes (Hospitalization)
  Sender: FDA-Public Use
  Company Number: FR-MERCK-1101FRA00069

PATIENT
  Age: 40 Year
  Sex: Male

DRUGS (2)
  1. ZETIA [Suspect]
     Route: 048
     Dates: start: 20101203, end: 20101201
  2. ATORVASTATIN CALCIUM [Suspect]
     Route: 048
     Dates: end: 20101202

REACTIONS (4)
  - MYALGIA [None]
  - BLOOD CREATINE PHOSPHOKINASE INCREASED [None]
  - FALL [None]
  - HEPATITIS [None]
